FAERS Safety Report 10233720 (Version 4)
Quarter: 2015Q2

REPORT INFORMATION
  Report Type: Spontaneous
  Country: US (occurrence: US)
  Receive Date: 20140612
  Receipt Date: 20150519
  Transmission Date: 20150821
  Serious: Yes (Hospitalization)
  Sender: FDA-Public Use
  Company Number: US-BAYER-2014-088019

PATIENT
  Age: 28 Year
  Sex: Female
  Weight: 58.96 kg

DRUGS (2)
  1. MIRENA [Suspect]
     Active Substance: LEVONORGESTREL
     Indication: CONTRACEPTION
     Dosage: 20 MCG/24HR, CONT
     Route: 015
     Dates: start: 20090721, end: 20100716
  2. DARVOCET-N 100 [Concomitant]
     Active Substance: ACETAMINOPHEN\PROPOXYPHENE NAPSYLATE
     Indication: PAIN
     Dosage: 100-650 MG EVERY 4 TO 6 HOURS AS NEEDED
     Dates: start: 20100712

REACTIONS (10)
  - Vaginal haemorrhage [None]
  - Menstruation irregular [None]
  - Scar [None]
  - Off label use of device [None]
  - Uterine perforation [Not Recovered/Not Resolved]
  - Weight increased [None]
  - Pain [Not Recovered/Not Resolved]
  - Injury [Not Recovered/Not Resolved]
  - Coital bleeding [None]
  - Amenorrhoea [None]

NARRATIVE: CASE EVENT DATE: 200907
